FAERS Safety Report 5295610-6 (Version None)
Quarter: 2007Q1

REPORT INFORMATION
  Report Type: 
  Country: None (occurrence: None)
  Receive Date: 20070201
  Receipt Date: 20061013
  Transmission Date: 20070707
  Serious: No
  Sender: FDA-Public Use
  Company Number: 2006PV023204

PATIENT
  Sex: Male

DRUGS (3)
  1. BYETTA [Suspect]
     Indication: DIABETES MELLITUS NON-INSULIN-DEPENDENT
     Dosage: SC; 20 MCG; BID; SC
     Route: 058
     Dates: start: 20060301
  2. BYETTA [Suspect]
     Indication: DIABETES MELLITUS NON-INSULIN-DEPENDENT
     Dosage: SC; 20 MCG; BID; SC
     Route: 058
     Dates: start: 20060601
  3. ORAL DIABETETIC MEDICATION [Concomitant]

REACTIONS (2)
  - MEDICATION ERROR [None]
  - WEIGHT DECREASED [None]
